FAERS Safety Report 12480905 (Version 1)
Quarter: 2016Q2

REPORT INFORMATION
  Report Type: Spontaneous
  Country: US (occurrence: US)
  Receive Date: 20160620
  Receipt Date: 20160620
  Transmission Date: 20160815
  Serious: No
  Sender: FDA-Public Use
  Company Number: US-009507513-1606USA004830

PATIENT

DRUGS (1)
  1. STERILE DILUENT [Suspect]
     Active Substance: WATER
     Dosage: UNK
     Route: 058

REACTIONS (2)
  - No adverse event [Unknown]
  - Incorrect product storage [Unknown]
